FAERS Safety Report 6888996-X (Version None)
Quarter: 2010Q3

REPORT INFORMATION
  Report Type: 
  Country: None (occurrence: None)
  Receive Date: 20100730
  Receipt Date: 20071204
  Transmission Date: 20110219
  Serious: No
  Sender: FDA-Public Use
  Company Number: US-PFIZER INC-001-0981-M0101413

PATIENT
  Sex: Female
  Weight: 72.57 kg

DRUGS (6)
  1. LIPITOR [Suspect]
     Indication: BLOOD CHOLESTEROL INCREASED
     Route: 048
     Dates: start: 20001201
  2. LIPITOR [Suspect]
     Dosage: DAILY
     Route: 048
     Dates: start: 20010129, end: 20010219
  3. TOPROL-XL [Concomitant]
     Dates: start: 19950101
  4. ESTROGEN NOS [Concomitant]
     Route: 065
  5. VITAMIN E [Concomitant]
     Route: 065
  6. CALCIUM [Concomitant]
     Route: 065

REACTIONS (3)
  - ALOPECIA [None]
  - BURNING SENSATION [None]
  - HAIR TEXTURE ABNORMAL [None]
